FAERS Safety Report 21768184 (Version 1)
Quarter: 2022Q4

REPORT INFORMATION
  Report Type: Spontaneous
  Country: None (occurrence: GB)
  Receive Date: 20221222
  Receipt Date: 20221222
  Transmission Date: 20230112
  Serious: Yes (Life-Threatening, Other)
  Sender: FDA-Public Use
  Company Number: GB-Harrow Eye-2136099

PATIENT
  Age: 5 Month
  Sex: Female
  Weight: 5.3 kg

DRUGS (1)
  1. IOPIDINE [Suspect]
     Active Substance: APRACLONIDINE HYDROCHLORIDE
     Indication: Ophthalmological examination
     Route: 047
     Dates: start: 20181212, end: 20181212

REACTIONS (6)
  - Circulatory collapse [Recovered/Resolved]
  - Hypoxia [None]
  - Apnoea [None]
  - Pallor [None]
  - Bradycardia [None]
  - Contraindicated product administered [None]

NARRATIVE: CASE EVENT DATE: 20181212
